FAERS Safety Report 8089188-1 (Version None)
Quarter: 2012Q1

REPORT INFORMATION
  Report Type: 
  Country: None (occurrence: None)
  Receive Date: 20120128
  Receipt Date: 20110629
  Transmission Date: 20120608
  Serious: No
  Sender: FDA-Public Use
  Company Number: US-ABBOTT-11P-163-0731926-00

PATIENT
  Sex: Male
  Weight: 110.32 kg

DRUGS (5)
  1. HUMIRA [Suspect]
     Dosage: 80 MG X 1; SECOND LOADING DOSE
     Route: 058
     Dates: start: 20110617, end: 20110617
  2. PENTASA [Concomitant]
     Indication: CROHN'S DISEASE
     Dosage: UNKNOWN DOSE; ONCE DAILY
  3. HUMIRA [Suspect]
     Indication: CROHN'S DISEASE
     Dosage: (160 MG X 1; FIRST LOADING DOSE)
     Route: 058
     Dates: start: 20110609, end: 20110609
  4. FLAGYL [Suspect]
     Indication: CROHN'S DISEASE
     Dosage: UNKNOWN DOSE; ONCE DAILY
     Route: 048
     Dates: start: 20110501
  5. PREDNISONE TAB [Concomitant]
     Indication: CROHN'S DISEASE
     Dosage: UNKNOWN DOSE; ONCE DAILY

REACTIONS (2)
  - NAUSEA [None]
  - MUSCULAR WEAKNESS [None]
